FAERS Safety Report 5599139-7 (Version None)
Quarter: 2008Q1

REPORT INFORMATION
  Report Type: 
  Country: None (occurrence: None)
  Receive Date: 20080122
  Receipt Date: 20080102
  Transmission Date: 20080703
  Serious: No
  Sender: FDA-Public Use
  Company Number: US-BOEHRINGER INGELHEIM PHARMACEUTICALS, INC.-2008-BP-00156BP

PATIENT

DRUGS (1)
  1. FLOMAX [Suspect]

REACTIONS (2)
  - FATIGUE [None]
  - SEXUAL DYSFUNCTION [None]
